FAERS Safety Report 9158250 (Version 2)
Quarter: 2013Q2

REPORT INFORMATION
  Report Type: Spontaneous
  Country: CH (occurrence: CH)
  Receive Date: 20130312
  Receipt Date: 20130603
  Transmission Date: 20140414
  Serious: Yes (Death, Hospitalization)
  Sender: FDA-Public Use
  Company Number: CH-ROCHE-1200512

PATIENT
  Age: 76 Year
  Sex: Female
  Weight: 48 kg

DRUGS (2)
  1. AVASTIN [Suspect]
     Indication: BREAST CANCER
     Route: 042
     Dates: start: 20120605, end: 20120605
  2. AVASTIN [Suspect]
     Indication: ANGIOSARCOMA
     Route: 042
     Dates: start: 20120619, end: 20120629

REACTIONS (2)
  - Angiosarcoma [Fatal]
  - Extravasation blood [Not Recovered/Not Resolved]
